FAERS Safety Report 16037294 (Version 1)
Quarter: 2019Q1

REPORT INFORMATION
  Report Type: Spontaneous
  Country: US (occurrence: US)
  Receive Date: 20190305
  Receipt Date: 20190305
  Transmission Date: 20190418
  Serious: Yes (Hospitalization)
  Sender: FDA-Public Use
  Company Number: US-JNJFOC-20190237678

PATIENT
  Age: 69 Year
  Sex: Female
  Weight: 89.36 kg

DRUGS (2)
  1. PREDNISONE. [Suspect]
     Active Substance: PREDNISONE
     Indication: PNEUMONIA
     Dosage: TAPER DOSE OF 4 PILLS FOR 4 DAYS, 3 PILLS FOR 4 DAYS, 2 PILLS FOR 4 DAYS,1 PILL FOR 4 DAYS
     Route: 065
     Dates: start: 201801, end: 201801
  2. LEVAQUIN [Suspect]
     Active Substance: LEVOFLOXACIN
     Indication: PNEUMONIA
     Route: 048
     Dates: start: 201801

REACTIONS (1)
  - Intestinal obstruction [Recovered/Resolved]

NARRATIVE: CASE EVENT DATE: 20180131
